FAERS Safety Report 20324602 (Version 1)
Quarter: 2022Q1

REPORT INFORMATION
  Report Type: Spontaneous
  Country: US (occurrence: US)
  Receive Date: 20220111
  Receipt Date: 20220111
  Transmission Date: 20220423
  Serious: No
  Sender: FDA-Public Use
  Company Number: US-FOUNDATIONCONSUMERHC-2021-US-024495

PATIENT
  Age: 19 Year
  Sex: Female
  Weight: 70.76 kg

DRUGS (2)
  1. PLAN B ONE-STEP [Suspect]
     Active Substance: LEVONORGESTREL
     Indication: Post coital contraception
     Dosage: 1.5MG
     Route: 048
     Dates: start: 20211103, end: 20211103
  2. AZITHROMYCIN [Suspect]
     Active Substance: AZITHROMYCIN
     Dosage: ESTIMATED TO BE 1000MG
     Dates: start: 20211104

REACTIONS (4)
  - Oropharyngeal pain [Recovered/Resolved]
  - Vaginal haemorrhage [Recovered/Resolved]
  - Breast tenderness [Not Recovered/Not Resolved]
  - Menstruation delayed [Not Recovered/Not Resolved]

NARRATIVE: CASE EVENT DATE: 20211104
